FAERS Safety Report 8415631-1 (Version None)
Quarter: 2012Q2

REPORT INFORMATION
  Report Type: 
  Country: None (occurrence: None)
  Receive Date: 20120606
  Receipt Date: 20120529
  Transmission Date: 20120825
  Serious: Yes (Hospitalization)
  Sender: FDA-Public Use
  Company Number: US-JNJFOC-20120520659

PATIENT
  Sex: Male

DRUGS (5)
  1. RISPERDAL CONSTA [Suspect]
     Route: 030
     Dates: start: 20100101
  2. RISPERDAL CONSTA [Suspect]
     Indication: SCHIZOAFFECTIVE DISORDER
     Route: 030
  3. HALDOL [Concomitant]
     Route: 065
  4. RISPERDAL [Suspect]
     Indication: PRODUCT USED FOR UNKNOWN INDICATION
     Route: 065
  5. AN UNKNOWN MEDICATION [Concomitant]
     Route: 065

REACTIONS (8)
  - PSYCHOTIC DISORDER [None]
  - HYPERHIDROSIS [None]
  - ADVERSE EVENT [None]
  - SUICIDAL IDEATION [None]
  - URINARY INCONTINENCE [None]
  - THIRST [None]
  - HUNGER [None]
  - WEIGHT INCREASED [None]
